FAERS Safety Report 11154720 (Version 1)
Quarter: 2015Q2

REPORT INFORMATION
  Report Type: Spontaneous
  Country: US (occurrence: None)
  Receive Date: 20150529
  Receipt Date: 20150529
  Transmission Date: 20150821
  Serious: Yes (Other)
  Sender: FDA-Public Use
  Company Number: 1224850-2015-00026

PATIENT
  Sex: Female

DRUGS (2)
  1. ZEMPLAR [Concomitant]
     Active Substance: PARICALCITOL
  2. PHOSLO [Suspect]
     Active Substance: CALCIUM ACETATE
     Indication: RENAL DISORDER
     Route: 048

REACTIONS (3)
  - Renal impairment [None]
  - Blood creatine increased [None]
  - Hypercalcaemia [None]

NARRATIVE: CASE EVENT DATE: 20090101
